FAERS Safety Report 12872012 (Version 1)
Quarter: 2016Q4

REPORT INFORMATION
  Report Type: Spontaneous
  Country: IT (occurrence: IT)
  Receive Date: 20161021
  Receipt Date: 20161021
  Transmission Date: 20170207
  Serious: Yes (Other)
  Sender: FDA-Public Use
  Company Number: IT-CIPLA LTD.-2016IT19459

PATIENT

DRUGS (2)
  1. LEVETIRACETAM. [Suspect]
     Active Substance: LEVETIRACETAM
     Indication: SEIZURE
     Dosage: UNK
     Route: 048
  2. SODIUM VALPROATE [Suspect]
     Active Substance: VALPROATE SODIUM
     Indication: SEIZURE
     Dosage: UNK
     Route: 065

REACTIONS (2)
  - Pyrexia [Not Recovered/Not Resolved]
  - Generalised tonic-clonic seizure [Not Recovered/Not Resolved]
